FAERS Safety Report 23388056 (Version 2)
Quarter: 2024Q1

REPORT INFORMATION
  Report Type: Report from Study
  Country: PE (occurrence: PE)
  Receive Date: 20240110
  Receipt Date: 20240220
  Transmission Date: 20240410
  Serious: Yes (Other)
  Sender: FDA-Public Use
  Company Number: PE-002147023-NVSC2024PE004641

PATIENT
  Age: 73 Year
  Sex: Female

DRUGS (1)
  1. COSENTYX [Suspect]
     Active Substance: SECUKINUMAB
     Indication: Ankylosing spondylitis
     Dosage: 150 MG, QMO
     Route: 058
     Dates: start: 20170701

REACTIONS (8)
  - Choking [Unknown]
  - Asphyxia [Unknown]
  - Acute sinusitis [Unknown]
  - Gastrointestinal disorder [Unknown]
  - Cough [Unknown]
  - Dysphonia [Unknown]
  - Asthenia [Unknown]
  - Off label use [Unknown]
